FAERS Safety Report 5251949-1 (Version None)
Quarter: 2007Q1

REPORT INFORMATION
  Report Type: 
  Country: None (occurrence: None)
  Receive Date: 20070223
  Receipt Date: 20070209
  Transmission Date: 20070707
  Serious: Yes (Hospitalization)
  Sender: FDA-Public Use
  Company Number: 2007000267

PATIENT
  Age: 56 Year
  Sex: Male
  Weight: 49.9 kg

DRUGS (2)
  1. ERLOTINIB (TABLET) [Suspect]
     Indication: NON-SMALL CELL LUNG CANCER
     Dosage: 50 MG (QD), ORAL
     Route: 048
     Dates: start: 20061219
  2. BEVACIZUMAB (INJECTION FOR INFUSION) [Suspect]
     Dosage: 1040 MG (DAYS 1 AND 22), INTRAVENOUS
     Route: 042
     Dates: start: 20061219

REACTIONS (4)
  - APPLICATION SITE BLEEDING [None]
  - GASTRECTOMY [None]
  - LARGE INTESTINAL HAEMORRHAGE [None]
  - RECTAL HAEMORRHAGE [None]
